FAERS Safety Report 12805472 (Version 1)
Quarter: 2016Q4

REPORT INFORMATION
  Report Type: Spontaneous
  Country: GB (occurrence: GB)
  Receive Date: 20161004
  Receipt Date: 20161004
  Transmission Date: 20170207
  Serious: Yes (Disabling)
  Sender: FDA-Public Use
  Company Number: GB-SUN PHARMACEUTICAL INDUSTRIES LTD-2016RR-124914

PATIENT
  Age: 18 Year
  Sex: Male

DRUGS (1)
  1. ISOTRETINOIN [Suspect]
     Active Substance: ISOTRETINOIN
     Indication: ACNE
     Dosage: UNK
     Route: 048
     Dates: start: 20160510, end: 20160810

REACTIONS (10)
  - Vasculitic rash [Not Recovered/Not Resolved]
  - Vomiting [Not Recovered/Not Resolved]
  - Purpura [Not Recovered/Not Resolved]
  - Haematuria [Not Recovered/Not Resolved]
  - Henoch-Schonlein purpura [Not Recovered/Not Resolved]
  - Diarrhoea [Not Recovered/Not Resolved]
  - Joint swelling [Not Recovered/Not Resolved]
  - Proteinuria [Not Recovered/Not Resolved]
  - Arthralgia [Not Recovered/Not Resolved]
  - Ketonuria [Not Recovered/Not Resolved]

NARRATIVE: CASE EVENT DATE: 20160804
